FAERS Safety Report 14312821 (Version 2)
Quarter: 2018Q1

REPORT INFORMATION
  Report Type: Report from Study
  Country: BR (occurrence: BR)
  Receive Date: 20171221
  Receipt Date: 20180207
  Transmission Date: 20180509
  Serious: Yes (Other)
  Sender: FDA-Public Use
  Company Number: PHHY2017BR164591

PATIENT
  Sex: Female
  Weight: 62 kg

DRUGS (9)
  1. ACLASTA [Suspect]
     Active Substance: ZOLEDRONIC ACID
     Indication: OSTEOPOROSIS
     Dosage: 1 DF (5 MG/100 ML), Q12MO
     Route: 042
  2. RAZAPINA [Concomitant]
     Active Substance: MIRTAZAPINE
     Indication: DEPRESSION
     Dosage: 1 DF, QD (2 YEARS AGO)
     Route: 048
  3. PANTOPRAZOLE [Concomitant]
     Active Substance: PANTOPRAZOLE
     Indication: ABDOMINAL DISCOMFORT
     Dosage: 1 DF, QD (3 YEARS AGO)
     Route: 048
  4. PROLOPA [Concomitant]
     Active Substance: BENSERAZIDE\LEVODOPA
     Indication: PARKINSON^S DISEASE
     Dosage: 4 DF, QD (2 YEARS AGO)
     Route: 048
  5. STABIL [Concomitant]
     Active Substance: PRAMIPEXOLE DIHYDROCHLORIDE
     Indication: DEPRESSION
     Dosage: 3 DF, QD (2 YEARS AGO)
     Route: 048
  6. ACLASTA [Suspect]
     Active Substance: ZOLEDRONIC ACID
     Dosage: 1 DF (5 MG/100 ML), Q12MO (IN 2018)
     Route: 042
  7. VITAMIN D [Concomitant]
     Active Substance: CHOLECALCIFEROL
     Indication: OSTEOPOROSIS
     Dosage: 10 DF, QD (1 YEAR AGO)
     Route: 048
  8. DONAREN [Concomitant]
     Active Substance: TRAZODONE HYDROCHLORIDE
     Indication: DEPRESSION
     Dosage: 1 DF, QD (2 YEARS AGO)
     Route: 048
  9. CALCIUM [Concomitant]
     Active Substance: CALCIUM
     Indication: OSTEOPOROSIS
     Dosage: 1 DF, QD (2 YEARS AGO)
     Route: 048

REACTIONS (16)
  - Fall [Not Recovered/Not Resolved]
  - Gastritis [Unknown]
  - Depression [Unknown]
  - Parkinson^s disease [Not Recovered/Not Resolved]
  - Glaucoma [Unknown]
  - Concomitant disease aggravated [Unknown]
  - Malaise [Unknown]
  - Osteoporosis [Not Recovered/Not Resolved]
  - Pain [Not Recovered/Not Resolved]
  - Spinal disorder [Unknown]
  - Spinal fracture [Not Recovered/Not Resolved]
  - Spinal pain [Not Recovered/Not Resolved]
  - Hypoacusis [Not Recovered/Not Resolved]
  - Procedural pain [Unknown]
  - Condition aggravated [Not Recovered/Not Resolved]
  - Body height decreased [Unknown]

NARRATIVE: CASE EVENT DATE: 2014
